FAERS Safety Report 25129592 (Version 1)
Quarter: 2025Q1

REPORT INFORMATION
  Report Type: Spontaneous
  Country: JP (occurrence: JP)
  Receive Date: 20250327
  Receipt Date: 20250327
  Transmission Date: 20250409
  Serious: Yes (Other)
  Sender: NOVARTIS
  Company Number: JP-002147023-NVSJ2025JP003464

PATIENT
  Age: 46 Year
  Sex: Female

DRUGS (1)
  1. CYCLOSPORINE [Suspect]
     Active Substance: CYCLOSPORINE
     Indication: Aplasia pure red cell
     Route: 065

REACTIONS (6)
  - Waldenstrom^s macroglobulinaemia [Recovering/Resolving]
  - Blood bilirubin unconjugated increased [Unknown]
  - Anaemia [Unknown]
  - Platelet count decreased [Unknown]
  - Blood immunoglobulin M increased [Recovering/Resolving]
  - Interleukin-2 receptor increased [Recovering/Resolving]
